FAERS Safety Report 7592260-3 (Version None)
Quarter: 2011Q3

REPORT INFORMATION
  Report Type: 
  Country: None (occurrence: None)
  Receive Date: 20110706
  Receipt Date: 20110621
  Transmission Date: 20111222
  Serious: Yes (Hospitalization)
  Sender: FDA-Public Use
  Company Number: JP-JNJFOC-20110400211

PATIENT
  Sex: Male
  Weight: 50 kg

DRUGS (4)
  1. REMICADE [Suspect]
     Dosage: 1ST INFUSION
     Route: 042
  2. REMICADE [Suspect]
     Dosage: 1ST INFUSION
     Route: 042
     Dates: start: 20100512
  3. REMICADE [Suspect]
     Indication: PSORIASIS
     Dosage: 5TH INFUSION
     Route: 042
     Dates: start: 20101014
  4. REMICADE [Suspect]
     Dosage: 6TH INFUSION
     Route: 042
     Dates: start: 20110323

REACTIONS (1)
  - BLADDER CANCER [None]
